FAERS Safety Report 17577318 (Version 1)
Quarter: 2020Q1

REPORT INFORMATION
  Report Type: Spontaneous
  Country: PL (occurrence: PL)
  Receive Date: 20200324
  Receipt Date: 20200324
  Transmission Date: 20200409
  Serious: Yes (Other)
  Sender: FDA-Public Use
  Company Number: PL-PRINSTON PHARMACEUTICAL INC.-2020PRN00093

PATIENT
  Age: 59 Year
  Sex: Male

DRUGS (4)
  1. LITHIUM. [Concomitant]
     Active Substance: LITHIUM
     Route: 065
  2. LOSARTAN. [Suspect]
     Active Substance: LOSARTAN
     Route: 065
  3. RISPERIDONE. [Suspect]
     Active Substance: RISPERIDONE
     Route: 065
  4. INDAPAMIDE. [Concomitant]
     Active Substance: INDAPAMIDE
     Route: 065

REACTIONS (2)
  - Atrial fibrillation [Unknown]
  - Drug interaction [Unknown]
